FAERS Safety Report 7964646-6 (Version None)
Quarter: 2011Q4

REPORT INFORMATION
  Report Type: 
  Country: None (occurrence: None)
  Receive Date: 20111208
  Receipt Date: 20111130
  Transmission Date: 20120403
  Serious: Yes (Hospitalization, Disabling)
  Sender: FDA-Public Use
  Company Number: US-NOVOPROD-340338

PATIENT

DRUGS (1)
  1. NOVOLOG [Suspect]
     Indication: TYPE 2 DIABETES MELLITUS
     Dosage: 20 U, TID, BEFORE EACH MEAL
     Route: 058
     Dates: start: 20080101

REACTIONS (2)
  - LEG AMPUTATION [None]
  - INFECTED BITES [None]
